FAERS Safety Report 8531848-X (Version None)
Quarter: 2012Q3

REPORT INFORMATION
  Report Type: 
  Country: None (occurrence: None)
  Receive Date: 20120716
  Receipt Date: 20120716
  Transmission Date: 20120928
  Serious: Yes (Other)
  Sender: FDA-Public Use
  Company Number: None

PATIENT
  Sex: Female

DRUGS (2)
  1. VENLAFAXINE [Suspect]
  2. EFFEXOR XR [Suspect]
     Dosage: 150 XL MG DAILY ORAL ; 1 1/2 YRS AGO?
     Route: 048

REACTIONS (5)
  - DRUG INEFFECTIVE [None]
  - ANXIETY [None]
  - DEPRESSION [None]
  - CONDITION AGGRAVATED [None]
  - PRODUCT SUBSTITUTION ISSUE [None]
